APPROVED DRUG PRODUCT: DEXAMETHASONE SODIUM PHOSPHATE
Active Ingredient: DEXAMETHASONE SODIUM PHOSPHATE
Strength: EQ 4MG PHOSPHATE/ML
Dosage Form/Route: INJECTABLE;INJECTION
Application: A087440 | Product #001
Applicant: LUITPOLD PHARMACEUTICALS INC
Approved: Jul 21, 1982 | RLD: Yes | RS: No | Type: DISCN